FAERS Safety Report 19982087 (Version 1)
Quarter: 2021Q4

REPORT INFORMATION
  Report Type: Spontaneous
  Country: US (occurrence: US)
  Receive Date: 20211022
  Receipt Date: 20211022
  Transmission Date: 20220303
  Serious: Yes (Hospitalization)
  Sender: FDA-Public Use
  Company Number: US-NOVOPROD-858390

PATIENT
  Age: 57 Year
  Sex: Female

DRUGS (1)
  1. OZEMPIC [Suspect]
     Active Substance: SEMAGLUTIDE
     Indication: Product used for unknown indication
     Dosage: 1 MG, QW
     Route: 058
     Dates: start: 2018

REACTIONS (4)
  - COVID-19 [Not Recovered/Not Resolved]
  - Anxiety [Recovered/Resolved]
  - Hypertension [Recovered/Resolved]
  - Candida infection [Not Recovered/Not Resolved]

NARRATIVE: CASE EVENT DATE: 20210802
